FAERS Safety Report 6504511-4 (Version None)
Quarter: 2009Q4

REPORT INFORMATION
  Report Type: 
  Country: None (occurrence: None)
  Receive Date: 20091217
  Receipt Date: 20091209
  Transmission Date: 20100525
  Serious: Yes (Hospitalization)
  Sender: FDA-Public Use
  Company Number: US-B.I. PHARMACEUTICALS,INC./RIDGEFIELD-2009-BP-14207BP

PATIENT
  Age: 95 Year
  Sex: Female

DRUGS (1)
  1. VIRAMUNE [Suspect]
     Dosage: 400 MG
     Route: 048
     Dates: start: 20091101

REACTIONS (3)
  - LIVER FUNCTION TEST ABNORMAL [None]
  - RASH [None]
  - WRONG DRUG ADMINISTERED [None]
